FAERS Safety Report 5225565-1 (Version None)
Quarter: 2007Q1

REPORT INFORMATION
  Report Type: 
  Country: None (occurrence: None)
  Receive Date: 20070131
  Receipt Date: 20070126
  Transmission Date: 20070707
  Serious: Yes (Other)
  Sender: FDA-Public Use
  Company Number: US-PFIZER INC-2007007021

PATIENT
  Sex: Female

DRUGS (2)
  1. CADUET [Suspect]
  2. WARFARIN SODIUM [Concomitant]

REACTIONS (1)
  - THROMBOCYTHAEMIA [None]
